FAERS Safety Report 25999903 (Version 1)
Quarter: 2025Q4

REPORT INFORMATION
  Report Type: Spontaneous
  Country: US (occurrence: US)
  Receive Date: 20251105
  Receipt Date: 20251105
  Transmission Date: 20260118
  Serious: No
  Sender: SUNOVION
  Company Number: US-SMPA-2025SPA013217

PATIENT
  Age: 93 Year
  Sex: Female

DRUGS (1)
  1. GEMTESA [Suspect]
     Active Substance: VIBEGRON
     Indication: Product used for unknown indication
     Dosage: 75 MILLIGRAM, QD
     Route: 048

REACTIONS (5)
  - Dizziness [Unknown]
  - Rhinorrhoea [Unknown]
  - Urinary hesitation [Unknown]
  - Urinary incontinence [Unknown]
  - Therapeutic product effect variable [Unknown]
